FAERS Safety Report 25215194 (Version 2)
Quarter: 2025Q2

REPORT INFORMATION
  Report Type: Spontaneous
  Country: US (occurrence: US)
  Receive Date: 20250418
  Receipt Date: 20250507
  Transmission Date: 20250717
  Serious: Yes (Other)
  Sender: ABBVIE
  Company Number: US-ABBVIE-6229883

PATIENT
  Age: 74 Year
  Sex: Male
  Weight: 108.86 kg

DRUGS (10)
  1. SKYRIZI [Suspect]
     Active Substance: RISANKIZUMAB-RZAA
     Indication: Dermatologic examination
     Route: 058
     Dates: start: 20240925
  2. SKYRIZI [Suspect]
     Active Substance: RISANKIZUMAB-RZAA
     Indication: Pityriasis rubra pilaris
  3. VASELINE PURE [Concomitant]
     Active Substance: PETROLATUM
     Indication: Pityriasis rubra pilaris
  4. ELIQUIS [Concomitant]
     Active Substance: APIXABAN
     Indication: Thrombosis
  5. CORTISONE [Concomitant]
     Active Substance: CORTISONE
     Indication: Pityriasis rubra pilaris
  6. COSMETICS [Concomitant]
     Active Substance: COSMETICS
     Indication: Pityriasis rubra pilaris
  7. AQUAPHOR [Concomitant]
     Active Substance: PETROLATUM
     Indication: Pityriasis rubra pilaris
  8. LIPITOR [Concomitant]
     Active Substance: ATORVASTATIN CALCIUM
     Indication: Blood cholesterol increased
  9. METOPROLOL [Concomitant]
     Active Substance: METOPROLOL
     Indication: Cardiac disorder
  10. OXYCODONE [Concomitant]
     Active Substance: OXYCODONE
     Indication: Eye pain

REACTIONS (7)
  - Eyelid ptosis [Recovering/Resolving]
  - Nodule [Recovering/Resolving]
  - Pityriasis rubra pilaris [Unknown]
  - Eye pain [Recovered/Resolved]
  - Off label use [Unknown]
  - Eye infection [Recovering/Resolving]
  - Fall [Not Recovered/Not Resolved]

NARRATIVE: CASE EVENT DATE: 20241201
